FAERS Safety Report 4694156-3 (Version None)
Quarter: 2005Q2

REPORT INFORMATION
  Report Type: 
  Country: None (occurrence: None)
  Receive Date: 20050617
  Receipt Date: 20050617
  Transmission Date: 20051028
  Serious: Yes (Other)
  Sender: FDA-Public Use
  Company Number: None

PATIENT
  Age: 50 Year
  Sex: Female
  Weight: 54.4316 kg

DRUGS (6)
  1. BUSPIRONE 10 MG [Suspect]
     Indication: ANXIETY
     Dosage: 15 MG TID ORAL
     Route: 048
     Dates: start: 20040718, end: 20040912
  2. BUSPIRONE 10 MG [Suspect]
     Indication: STRESS
     Dosage: 15 MG TID ORAL
     Route: 048
     Dates: start: 20040718, end: 20040912
  3. PROZAC [Suspect]
     Indication: ANXIETY
     Dosage: 20 MG QD ORAL
     Route: 048
     Dates: start: 19991001, end: 20040913
  4. PROZAC [Suspect]
     Indication: DEPRESSION
     Dosage: 20 MG QD ORAL
     Route: 048
     Dates: start: 19991001, end: 20040913
  5. MS CONTIN [Concomitant]
  6. VICODIN [Concomitant]

REACTIONS (21)
  - ABDOMINAL INFECTION [None]
  - ANXIETY [None]
  - ARTHRALGIA [None]
  - BACK PAIN [None]
  - BLOOD PRESSURE INCREASED [None]
  - CONTUSION [None]
  - DEPRESSION [None]
  - DYSKINESIA [None]
  - FEELING ABNORMAL [None]
  - LOSS OF EMPLOYMENT [None]
  - OEDEMA PERIPHERAL [None]
  - PAIN [None]
  - PAIN IN EXTREMITY [None]
  - PARKINSONISM [None]
  - PELVIC INFECTION [None]
  - POST PROCEDURAL PAIN [None]
  - PYREXIA [None]
  - RASH [None]
  - SEROTONIN SYNDROME [None]
  - SPEECH DISORDER [None]
  - TREMOR [None]
